FAERS Safety Report 5175292-4 (Version None)
Quarter: 2006Q4

REPORT INFORMATION
  Report Type: 
  Country: None (occurrence: None)
  Receive Date: 20061211
  Receipt Date: 20061211
  Transmission Date: 20070319
  Serious: Yes (Other)
  Sender: FDA-Public Use
  Company Number: None

PATIENT
  Age: 82 Year
  Sex: Female
  Weight: 53.978 kg

DRUGS (1)
  1. PRAVASTATIN SODIUM [Suspect]
     Indication: BLOOD CHOLESTEROL INCREASED
     Dosage: 40 MG 1 X DAY PO
     Route: 048
     Dates: start: 20061128, end: 20061209

REACTIONS (5)
  - DYSPHONIA [None]
  - FATIGUE [None]
  - HYPOAESTHESIA [None]
  - MUSCLE MASS [None]
  - PRURITUS [None]
